FAERS Safety Report 5911813-9 (Version None)
Quarter: 2008Q4

REPORT INFORMATION
  Report Type: 
  Country: None (occurrence: None)
  Receive Date: 20081008
  Receipt Date: 20080926
  Transmission Date: 20090506
  Serious: Yes (Other)
  Sender: FDA-Public Use
  Company Number: US-RANBAXY-2008US-13254

PATIENT

DRUGS (3)
  1. ISOTRETINOIN [Suspect]
     Indication: DRUG USE FOR UNKNOWN INDICATION
     Dosage: 40 MG, QD
     Route: 048
     Dates: start: 20080107, end: 20080118
  2. ISOTRETINOIN [Suspect]
     Dosage: 40 MG,(QD ON EVEN DAYS AND BD ON ODD DAYS)
     Route: 048
     Dates: start: 20060606, end: 20060608
  3. ISOTRETINOIN [Suspect]
     Dosage: 40 MG, (QD ON EVEN DAYS AND BD ON ODD DAYS)
     Route: 048
     Dates: start: 20061028, end: 20070311

REACTIONS (1)
  - PREGNANCY [None]
